FAERS Safety Report 5908529-1 (Version None)
Quarter: 2008Q3

REPORT INFORMATION
  Report Type: 
  Country: None (occurrence: None)
  Receive Date: 20080930
  Receipt Date: 20080923
  Transmission Date: 20090109
  Serious: Yes (Life-Threatening, Hospitalization, Other)
  Sender: FDA-Public Use
  Company Number: SPV1-2008-01812

PATIENT
  Age: 49 Year
  Sex: Male
  Weight: 99.8 kg

DRUGS (2)
  1. VYVANSE [Suspect]
     Indication: ATTENTION DEFICIT/HYPERACTIVITY DISORDER
     Dosage: 50 MG, 1X/DAY:QD, ORAL
     Route: 048
     Dates: start: 20080522, end: 20080719
  2. LEXAPRO [Concomitant]

REACTIONS (11)
  - AGGRESSION [None]
  - AGITATION [None]
  - DECREASED APPETITE [None]
  - INTENTIONAL OVERDOSE [None]
  - MOOD ALTERED [None]
  - PARANOIA [None]
  - PNEUMONIA ASPIRATION [None]
  - SOCIAL AVOIDANT BEHAVIOUR [None]
  - SUICIDAL IDEATION [None]
  - SUICIDE ATTEMPT [None]
  - VOMITING [None]
